FAERS Safety Report 7209392-1 (Version None)
Quarter: 2011Q1

REPORT INFORMATION
  Report Type: 
  Country: None (occurrence: None)
  Receive Date: 20110104
  Receipt Date: 20101229
  Transmission Date: 20110831
  Serious: Yes (Hospitalization)
  Sender: FDA-Public Use
  Company Number: US-TEVA-261511USA

PATIENT
  Sex: Female

DRUGS (12)
  1. TRAMADOL HCL [Suspect]
     Indication: BACK PAIN
     Dosage: 1 TO 2 TABLET PRN FOR PAIN
     Dates: start: 20080101, end: 20100801
  2. SALBUTAMOL [Concomitant]
  3. FUROSEMIDE [Concomitant]
  4. LORATADINE [Concomitant]
  5. MONTELUKAST [Concomitant]
  6. SALBUTAMOL [Concomitant]
  7. LISINOPRIL [Concomitant]
  8. VERAPAMIL [Concomitant]
  9. PROMETHAZINE [Concomitant]
     Dosage: AS NEEDED
  10. HYDROXYZINE [Concomitant]
  11. TOLTERODINE TARTRATE [Concomitant]
  12. ESOMEPRAZOLE MAGNESIUM [Concomitant]

REACTIONS (4)
  - IMPAIRED GASTRIC EMPTYING [None]
  - NAUSEA [None]
  - UMBILICAL HERNIA [None]
  - VOMITING [None]
